FAERS Safety Report 24964522 (Version 2)
Quarter: 2025Q4

REPORT INFORMATION
  Report Type: Spontaneous
  Country: US (occurrence: US)
  Receive Date: 20250213
  Receipt Date: 20251223
  Transmission Date: 20260118
  Serious: Yes (Other)
  Sender: COOPERSURGICAL
  Company Number: US-COOPERSURGICAL, INC.-2025CPS000682

PATIENT
  Age: 36 Year
  Sex: Female
  Weight: 68.027 kg

DRUGS (2)
  1. PARAGARD T 380A [Suspect]
     Active Substance: COPPER
     Indication: Contraception
     Dosage: UNK
     Route: 015
     Dates: start: 20080101
  2. MIRENA [Suspect]
     Active Substance: LEVONORGESTREL
     Indication: Contraception
     Dosage: UNK
     Route: 015
     Dates: start: 20160114

REACTIONS (11)
  - Device breakage [Recovered/Resolved]
  - Foreign body in urogenital tract [Recovered/Resolved]
  - Complication of device removal [Recovered/Resolved]
  - Emotional distress [Recovered/Resolved]
  - Abdominal pain upper [Recovered/Resolved]
  - Procedural pain [Recovered/Resolved]
  - Procedural haemorrhage [Recovered/Resolved]
  - Complication associated with device [Recovered/Resolved]
  - Device dislocation [Recovered/Resolved]
  - Abnormal uterine bleeding [Recovered/Resolved]
  - Heavy menstrual bleeding [Unknown]

NARRATIVE: CASE EVENT DATE: 20100101
